FAERS Safety Report 7501698-1 (Version None)
Quarter: 2011Q2

REPORT INFORMATION
  Report Type: 
  Country: None (occurrence: None)
  Receive Date: 20110525
  Receipt Date: 20110513
  Transmission Date: 20111010
  Serious: Yes (Other)
  Sender: FDA-Public Use
  Company Number: AR-AMGEN-ARGSP2011023501

PATIENT
  Age: 41 Year
  Sex: Female
  Weight: 72 kg

DRUGS (6)
  1. METHOTREXATE [Concomitant]
     Dosage: UNK
  2. DICLOFENAC SODIUM [Concomitant]
     Dosage: UNK
  3. PENICILLIN G BENZATHINE [Suspect]
     Dosage: UNK
     Dates: start: 20101201
  4. CORTICOSTEROIDS [Concomitant]
     Dosage: UNK
  5. ATENOLOL [Concomitant]
     Dosage: UNK
  6. ENBREL [Suspect]
     Indication: RHEUMATOID ARTHRITIS
     Dosage: 50 MG, WEEKLY
     Route: 058
     Dates: start: 20100101, end: 20101201

REACTIONS (2)
  - PHARYNGITIS [None]
  - HYPERSENSITIVITY [None]
